FAERS Safety Report 21886142 (Version 2)
Quarter: 2023Q1

REPORT INFORMATION
  Report Type: Spontaneous
  Country: JP (occurrence: JP)
  Receive Date: 20230119
  Receipt Date: 20230211
  Transmission Date: 20230418
  Serious: Yes (Other)
  Sender: FDA-Public Use
  Company Number: JP-TEVA-2023-JP-2846771

PATIENT
  Age: 59 Year
  Sex: Female

DRUGS (8)
  1. AMLODIPINE [Suspect]
     Active Substance: AMLODIPINE BESYLATE
     Indication: Hypertension
     Dosage: 5 MILLIGRAM DAILY; ONCE A DAY
     Route: 065
  2. TELMISARTAN [Suspect]
     Active Substance: TELMISARTAN
     Indication: Hypertension
     Dosage: 20 MILLIGRAM DAILY; ONCE A DAY
     Route: 065
  3. CILNIDIPINE [Suspect]
     Active Substance: CILNIDIPINE
     Indication: Hypertension
     Dosage: 10 MILLIGRAM DAILY; ONCE A DAY
     Route: 065
  4. CANDESARTAN CILEXETIL [Suspect]
     Active Substance: CANDESARTAN CILEXETIL
     Indication: Hypertension
     Dosage: 4 MILLIGRAM DAILY; ONCE A DAY
     Route: 065
  5. HERBALS [Suspect]
     Active Substance: HERBALS
     Indication: Hypertension
     Dosage: 7.5 MILLIGRAM DAILY; ONCE A DAY , TJ-54 [YOKUKANSAN] EXTRACT GRANULES
     Route: 065
  6. METHYLDOPA [Concomitant]
     Active Substance: METHYLDOPA
     Indication: Hypertension
     Dosage: 750 MILLIGRAM DAILY; ONCE A DAY
     Route: 065
  7. ATENOLOL [Concomitant]
     Active Substance: ATENOLOL
     Indication: Hypertension
     Dosage: 12.5 MILLIGRAM DAILY; ONCE A DAY
     Route: 065
  8. BISOPROLOL FUMARATE [Concomitant]
     Active Substance: BISOPROLOL FUMARATE
     Indication: Hypertension
     Dosage: 4 MILLIGRAM DAILY; ONCE A DAY , PATCH
     Route: 065

REACTIONS (11)
  - Respiratory distress [Recovering/Resolving]
  - Constipation [Recovering/Resolving]
  - Palpitations [Recovering/Resolving]
  - Nausea [Not Recovered/Not Resolved]
  - Tinnitus [Recovering/Resolving]
  - Anxiety [Recovering/Resolving]
  - Musculoskeletal stiffness [Unknown]
  - Headache [Recovering/Resolving]
  - Sluggishness [Recovering/Resolving]
  - Somnolence [Recovering/Resolving]
  - Drug ineffective [Unknown]
